FAERS Safety Report 9300084 (Version 2)
Quarter: 2014Q2

REPORT INFORMATION
  Report Type: Report from Study
  Country: GB (occurrence: GB)
  Receive Date: 20130521
  Receipt Date: 20140415
  Transmission Date: 20141212
  Serious: Yes (Hospitalization, Other)
  Sender: FDA-Public Use
  Company Number: GB-ROCHE-1218109

PATIENT
  Age: 24 Year
  Sex: Female
  Weight: 70 kg

DRUGS (18)
  1. ROACTEMRA [Suspect]
     Indication: RHEUMATOID ARTHRITIS
     Route: 042
     Dates: start: 201104
  2. ROACTEMRA [Suspect]
     Route: 042
     Dates: start: 20120823
  3. RITUXIMAB [Suspect]
     Indication: PRODUCT USED FOR UNKNOWN INDICATION
     Route: 042
     Dates: start: 201001
  4. RITUXIMAB [Suspect]
     Route: 042
     Dates: start: 201007
  5. RITUXIMAB [Suspect]
     Route: 042
     Dates: start: 201101
  6. METHOTREXATE [Suspect]
     Indication: PRODUCT USED FOR UNKNOWN INDICATION
     Route: 065
     Dates: start: 201001
  7. METHOTREXATE [Suspect]
     Route: 065
     Dates: start: 201007
  8. METHOTREXATE [Suspect]
     Route: 065
     Dates: start: 201101
  9. PREDNISOLONE [Concomitant]
     Route: 065
  10. THYROXINE [Concomitant]
     Route: 065
  11. GABAPENTIN [Concomitant]
     Route: 065
  12. CITALOPRAM [Concomitant]
     Route: 065
  13. CITALOPRAM [Concomitant]
     Route: 065
  14. INSULIN [Concomitant]
  15. HYDROXYCHLOROQUINE [Concomitant]
     Dosage: ON ALTERNATE DAYS
     Route: 065
  16. HYDROXYCHLOROQUINE [Concomitant]
     Route: 048
  17. OXYCODONE [Concomitant]
     Indication: PAIN
     Route: 065
  18. BISOPROLOL [Concomitant]
     Indication: HYPERTENSION
     Route: 065

REACTIONS (7)
  - Cellulitis [Not Recovered/Not Resolved]
  - Endometriosis [Not Recovered/Not Resolved]
  - Pelvic inflammatory disease [Unknown]
  - Alopecia [Unknown]
  - Nausea [Unknown]
  - Neoplasm [Unknown]
  - No therapeutic response [Unknown]
